FAERS Safety Report 13212576 (Version 1)
Quarter: 2017Q1

REPORT INFORMATION
  Report Type: Report from Study
  Country: TR (occurrence: TR)
  Receive Date: 20170210
  Receipt Date: 20170210
  Transmission Date: 20170428
  Serious: Yes (Other)
  Sender: FDA-Public Use
  Company Number: TR-ASTRAZENECA-2017SE14139

PATIENT

DRUGS (6)
  1. TRANECSAMIC ACID [Concomitant]
     Dosage: 15 MG/KG DURING INDUCTION
     Route: 065
  2. THROMBOCYTE [Concomitant]
     Dosage: SIX UNITS
     Route: 065
  3. TICAGRELOR [Suspect]
     Active Substance: TICAGRELOR
     Dosage: LOADING DOSE OF 180 MG
     Route: 048
  4. TICAGRELOR [Suspect]
     Active Substance: TICAGRELOR
     Route: 048
  5. TRANECSAMIC ACID [Concomitant]
     Dosage: 15 MG/KG AFTER PROTAMINE INFUSION
     Route: 065
  6. PROTAMINE [Concomitant]
     Active Substance: PROTAMINE
     Route: 042

REACTIONS (2)
  - Cardiac tamponade [Unknown]
  - Post procedural haemorrhage [Unknown]
